FAERS Safety Report 5092815-4 (Version None)
Quarter: 2006Q3

REPORT INFORMATION
  Report Type: 
  Country: None (occurrence: None)
  Receive Date: 20060828
  Receipt Date: 20060810
  Transmission Date: 20061208
  Serious: Yes (Other)
  Sender: FDA-Public Use
  Company Number: ITWYE644210AUG06

PATIENT
  Age: 44 Year
  Sex: Male

DRUGS (6)
  1. PIPERACILLIN AND TAZOBACTAM [Suspect]
     Indication: ERYSIPELAS
     Dosage: 4.5 G 1X PER 1 DAY; INTRAVENOUS
     Route: 042
     Dates: start: 20060801, end: 20060807
  2. MERREM (MEROPENEM, , 0) [Suspect]
     Indication: ERYSIPELAS
     Dosage: 1000 MG 1X PER 1 DAY; INTRAVENOUS
     Route: 042
     Dates: start: 20060802, end: 20060807
  3. ALLOPURINOL [Suspect]
     Indication: ERYSIPELAS
     Dosage: 300 MG 1X PER 1 DAY; ORAL
     Route: 048
     Dates: start: 20060805, end: 20060807
  4. NORVASC [Concomitant]
  5. BISOPROLOL FUMARATE [Concomitant]
  6. LANSOX (LANSOPRAZOLE) [Concomitant]

REACTIONS (1)
  - TOXIC SKIN ERUPTION [None]
